FAERS Safety Report 9016441 (Version 1)
Quarter: 2013Q1

REPORT INFORMATION
  Report Type: Spontaneous
  Country: IT (occurrence: IT)
  Receive Date: 20130116
  Receipt Date: 20130116
  Transmission Date: 20140127
  Serious: Yes (Other)
  Sender: FDA-Public Use
  Company Number: IT-GLAXOSMITHKLINE-B0860049A

PATIENT
  Age: 89 Year
  Sex: Male

DRUGS (1)
  1. ARIXTRA [Suspect]
     Indication: DEEP VEIN THROMBOSIS
     Dosage: 7.5MG PER DAY
     Route: 065
     Dates: start: 20121210, end: 20121220

REACTIONS (2)
  - Retroperitoneal haematoma [Unknown]
  - Hypovolaemic shock [Unknown]
